FAERS Safety Report 23146241 (Version 1)
Quarter: 2023Q4

REPORT INFORMATION
  Report Type: Spontaneous
  Country: NL (occurrence: NL)
  Receive Date: 20231104
  Receipt Date: 20231104
  Transmission Date: 20240110
  Serious: Yes (Other)
  Sender: FDA-Public Use
  Company Number: NL-MLMSERVICE-20231023-4617006-1

PATIENT
  Age: 86 Year
  Sex: Male

DRUGS (7)
  1. AMIODARONE [Suspect]
     Active Substance: AMIODARONE
     Indication: Ventricular tachycardia
     Dosage: 200 MILLIGRAM, TWO TIMES A DAY (INITIAL LOADING DOSE REGIMEN (1 WEEK 200 MG B.I.D.)
     Route: 065
     Dates: start: 2021, end: 2021
  2. AMIODARONE [Suspect]
     Active Substance: AMIODARONE
     Dosage: 200 MILLIGRAM, 3 TIMES A DAY (INITIAL LOADING DOSE REGIMEN (1 WEEK 200 MG T.I.D.)
     Route: 065
     Dates: start: 202105, end: 2021
  3. AMIODARONE [Suspect]
     Active Substance: AMIODARONE
     Dosage: 200 MILLIGRAM, ONCE A DAY
     Route: 065
     Dates: start: 2021, end: 202204
  4. BUMETANIDE [Concomitant]
     Active Substance: BUMETANIDE
     Indication: Diuretic therapy
     Dosage: UNK
     Route: 065
  5. EPLERENONE [Concomitant]
     Active Substance: EPLERENONE
     Indication: Proteinuria
     Dosage: UNK
     Route: 065
     Dates: start: 2014
  6. PERINDOPRIL [Concomitant]
     Active Substance: PERINDOPRIL
     Dosage: UNK
     Route: 065
  7. QUINAPRIL [Concomitant]
     Active Substance: QUINAPRIL
     Indication: Proteinuria
     Dosage: UNK
     Route: 065
     Dates: start: 2014

REACTIONS (5)
  - Renal impairment [Recovering/Resolving]
  - Renal phospholipidosis [Unknown]
  - Metabolic acidosis [Unknown]
  - Chronic kidney disease [Recovering/Resolving]
  - Phospholipidosis [Unknown]

NARRATIVE: CASE EVENT DATE: 20211001
